FAERS Safety Report 18026173 (Version 2)
Quarter: 2020Q3

REPORT INFORMATION
  Report Type: Report from Study
  Country: None (occurrence: US)
  Receive Date: 20200715
  Receipt Date: 20200722
  Transmission Date: 20201103
  Serious: Yes (Hospitalization, Other)
  Sender: FDA-Public Use
  Company Number: US-ABBVIE-20K-163-3482422-00

PATIENT
  Age: 61 Year
  Sex: Male

DRUGS (3)
  1. HUMIRA [Suspect]
     Active Substance: ADALIMUMAB
     Dosage: CF
     Route: 058
  2. HUMIRA [Suspect]
     Active Substance: ADALIMUMAB
     Route: 058
  3. HUMIRA [Suspect]
     Active Substance: ADALIMUMAB
     Indication: COLITIS ULCERATIVE
     Dosage: CF
     Route: 058

REACTIONS (9)
  - Diarrhoea [Unknown]
  - Asthenia [Unknown]
  - Hyperhidrosis [Unknown]
  - Device issue [Unknown]
  - Cold sweat [Unknown]
  - Pallor [Unknown]
  - Septic shock [Unknown]
  - Dehydration [Unknown]
  - Tremor [Unknown]

NARRATIVE: CASE EVENT DATE: 2020
